FAERS Safety Report 25333604 (Version 1)
Quarter: 2025Q2

REPORT INFORMATION
  Report Type: Report from Study
  Country: US (occurrence: US)
  Receive Date: 20250520
  Receipt Date: 20250520
  Transmission Date: 20250716
  Serious: Yes (Hospitalization)
  Sender: ABBVIE
  Company Number: US-ABBVIE-5994112

PATIENT
  Age: 68 Year
  Sex: Female

DRUGS (1)
  1. RINVOQ [Suspect]
     Active Substance: UPADACITINIB
     Indication: Product used for unknown indication
     Route: 048
     Dates: start: 20230101

REACTIONS (12)
  - Dyspnoea [Unknown]
  - Malaise [Unknown]
  - Gait disturbance [Unknown]
  - Cough [Unknown]
  - Arthropathy [Unknown]
  - Oxygen saturation decreased [Unknown]
  - Pneumonia [Not Recovered/Not Resolved]
  - Lung induration [Unknown]
  - Haemoglobin abnormal [Unknown]
  - Rheumatoid factor increased [Unknown]
  - Rheumatoid arthritis [Not Recovered/Not Resolved]
  - Illness [Not Recovered/Not Resolved]

NARRATIVE: CASE EVENT DATE: 20231201
